FAERS Safety Report 17820081 (Version 3)
Quarter: 2020Q2

REPORT INFORMATION
  Report Type: Spontaneous
  Country: BE (occurrence: BE)
  Receive Date: 20200525
  Receipt Date: 20200604
  Transmission Date: 20200714
  Serious: Yes (Disabling)
  Sender: FDA-Public Use
  Company Number: BE-ROCHE-2362859

PATIENT
  Sex: Female
  Weight: 30.1 kg

DRUGS (3)
  1. AVASTIN [Suspect]
     Active Substance: BEVACIZUMAB
     Route: 065
     Dates: start: 20191004
  2. AVASTIN [Suspect]
     Active Substance: BEVACIZUMAB
     Indication: ASTROCYTOMA, LOW GRADE
     Route: 065
     Dates: start: 20190618
  3. AVASTIN [Suspect]
     Active Substance: BEVACIZUMAB
     Indication: PRODUCT USED FOR UNKNOWN INDICATION
     Route: 065
     Dates: start: 20190723

REACTIONS (3)
  - Off label use [Unknown]
  - Blindness [Not Recovered/Not Resolved]
  - Intentional product use issue [Unknown]
